FAERS Safety Report 9239873 (Version 1)
Quarter: 2013Q2

REPORT INFORMATION
  Report Type: Spontaneous
  Country: US (occurrence: US)
  Receive Date: 20130418
  Receipt Date: 20130418
  Transmission Date: 20140414
  Serious: Yes (Other)
  Sender: FDA-Public Use
  Company Number: US-PFIZER INC-2013120378

PATIENT
  Age: 53 Year
  Sex: Female
  Weight: 107 kg

DRUGS (6)
  1. LYRICA [Suspect]
     Indication: NERVE INJURY
     Dosage: UNK
     Dates: start: 2009
  2. NORCO [Suspect]
     Indication: ANALGESIC THERAPY
     Dosage: UNK
  3. OXYCONTIN [Suspect]
     Indication: ANALGESIC THERAPY
     Dosage: UNK
  4. VALIUM [Concomitant]
     Dosage: UNK
  5. IMIPRAMINE [Concomitant]
     Indication: INCONTINENCE
     Dosage: ONE TIME NIGHTLY
  6. OXYBUTYNIN [Concomitant]
     Indication: INCONTINENCE
     Dosage: UNK

REACTIONS (3)
  - Weight increased [Unknown]
  - Spinal disorder [Unknown]
  - Feeling abnormal [Unknown]
